FAERS Safety Report 5472274-X (Version None)
Quarter: 2007Q3

REPORT INFORMATION
  Report Type: 
  Country: None (occurrence: None)
  Receive Date: 20070927
  Receipt Date: 20070917
  Transmission Date: 20080115
  Serious: Yes (Other)
  Sender: FDA-Public Use
  Company Number: 2007RL000381

PATIENT
  Age: 83 Year
  Sex: Female
  Weight: 71.6683 kg

DRUGS (13)
  1. LOVAZA [Suspect]
     Indication: BLOOD CHOLESTEROL INCREASED
     Dosage: 1 GM;QD; PO; 2 GM; QD; PO; 3 GM; QD; PO
     Route: 048
     Dates: start: 20050101, end: 20050101
  2. LOVAZA [Suspect]
     Indication: BLOOD CHOLESTEROL INCREASED
     Dosage: 1 GM;QD; PO; 2 GM; QD; PO; 3 GM; QD; PO
     Route: 048
     Dates: start: 20050101, end: 20050101
  3. LOVAZA [Suspect]
     Indication: BLOOD CHOLESTEROL INCREASED
     Dosage: 1 GM;QD; PO; 2 GM; QD; PO; 3 GM; QD; PO
     Route: 048
     Dates: start: 20050101, end: 20050101
  4. LOVAZA [Suspect]
     Indication: BLOOD CHOLESTEROL INCREASED
     Dosage: 1 GM;QD; PO; 2 GM; QD; PO; 3 GM; QD; PO
     Route: 048
     Dates: start: 20060101, end: 20060101
  5. LOVAZA [Suspect]
     Indication: BLOOD CHOLESTEROL INCREASED
     Dosage: 1 GM;QD; PO; 2 GM; QD; PO; 3 GM; QD; PO
     Route: 048
     Dates: start: 20060101, end: 20060101
  6. LOVAZA [Suspect]
     Indication: BLOOD CHOLESTEROL INCREASED
     Dosage: 1 GM;QD; PO; 2 GM; QD; PO; 3 GM; QD; PO
     Route: 048
     Dates: start: 20060101, end: 20060101
  7. LOVAZA [Suspect]
     Indication: BLOOD CHOLESTEROL INCREASED
     Dosage: 1 GM;QD; PO; 2 GM; QD; PO; 3 GM; QD; PO
     Route: 048
     Dates: start: 20070728, end: 20070802
  8. TRIAMTERENE AND HYDROCHLOROTHIAZIDE [Suspect]
     Indication: HYPERTENSION
     Dosage: QD; PO
     Route: 048
     Dates: start: 19990101, end: 20070101
  9. LEVOTHYROXINE SODIUM [Concomitant]
  10. PREVACID [Concomitant]
  11. LOTREL [Concomitant]
  12. PLAVIX [Concomitant]
  13. AMIODARONE [Concomitant]

REACTIONS (9)
  - ASTHENIA [None]
  - DIZZINESS [None]
  - FALL [None]
  - FATIGUE [None]
  - JOINT SPRAIN [None]
  - NECK PAIN [None]
  - REFUSAL OF TREATMENT BY PATIENT [None]
  - SQUAMOUS CELL CARCINOMA OF SKIN [None]
  - VISUAL ACUITY REDUCED [None]
